FAERS Safety Report 5308968-6 (Version None)
Quarter: 2007Q2

REPORT INFORMATION
  Report Type: 
  Country: None (occurrence: None)
  Receive Date: 20070426
  Receipt Date: 20070419
  Transmission Date: 20071010
  Serious: Yes (Other)
  Sender: FDA-Public Use
  Company Number: FR-BOEHRINGER INGELHEIM GMBH, GERMANY-2007-FF-00438PF

PATIENT
  Sex: Male
  Weight: 82 kg

DRUGS (7)
  1. SPIRIVA [Suspect]
     Indication: CHRONIC OBSTRUCTIVE PULMONARY DISEASE
     Route: 055
     Dates: start: 20060627, end: 20060629
  2. SPIRIVA [Suspect]
     Indication: INCREASED BRONCHIAL SECRETION
  3. FLECAINIDE ACETATE [Concomitant]
     Indication: ARRHYTHMIA
     Route: 048
  4. KARDEGIC [Concomitant]
     Indication: TRANSIENT ISCHAEMIC ATTACK
     Route: 048
  5. TEVETEN [Concomitant]
     Indication: HYPERTENSION
     Route: 048
  6. LASIX [Concomitant]
     Indication: CARDIAC FAILURE
     Route: 048
  7. PARIET [Concomitant]
     Indication: HIATUS HERNIA
     Route: 048

REACTIONS (2)
  - BRONCHIAL HYPERREACTIVITY [None]
  - COUGH [None]
